FAERS Safety Report 5317310-6 (Version None)
Quarter: 2007Q2

REPORT INFORMATION
  Report Type: 
  Country: None (occurrence: None)
  Receive Date: 20070504
  Receipt Date: 20070424
  Transmission Date: 20071010
  Serious: Yes (Other)
  Sender: FDA-Public Use
  Company Number: US-PFIZER INC-2007033624

PATIENT
  Sex: Female

DRUGS (5)
  1. ZITHROMAX [Suspect]
     Dates: start: 20070416, end: 20070419
  2. LEVOXYL [Concomitant]
  3. VIVELLE [Concomitant]
  4. LASIX [Concomitant]
  5. POTASSIUM ACETATE [Concomitant]

REACTIONS (1)
  - ARRHYTHMIA [None]
